FAERS Safety Report 11340558 (Version 1)
Quarter: 2015Q3

REPORT INFORMATION
  Report Type: Spontaneous
  Country: US (occurrence: None)
  Receive Date: 20150629
  Receipt Date: 20150629
  Transmission Date: 20151125
  Serious: No
  Sender: FDA-Public Use
  Company Number: A-US2014-109714

PATIENT
  Age: 52 Year
  Sex: Female

DRUGS (11)
  1. METOPROLOL [Concomitant]
     Active Substance: METOPROLOL
  2. RANITIDINE [Concomitant]
     Active Substance: RANITIDINE\RANITIDINE HYDROCHLORIDE
  3. OMEPRAZOLE. [Concomitant]
     Active Substance: OMEPRAZOLE
  4. OPSUMIT [Suspect]
     Active Substance: MACITENTAN
     Indication: PULMONARY HYPERTENSION
     Route: 048
     Dates: start: 20140728
  5. XARELTO [Concomitant]
     Active Substance: RIVAROXABAN
  6. SENNA LEAF (SENNA ALEXANDRINA LEAF) [Concomitant]
  7. LASIX [Concomitant]
     Active Substance: FUROSEMIDE
  8. ALDACTONE [Concomitant]
     Active Substance: SPIRONOLACTONE
  9. LOSARTAN POTASSIUM. [Concomitant]
     Active Substance: LOSARTAN POTASSIUM
  10. CIRUELAX (CITRIC ACID, HONEY, LINUM USITATISSIMUM, PRUNUS DOMESTICA, SENNA ALEXANDRINA, SUCROSE, TRITICUM AESTIVUM) [Concomitant]
  11. CORDARONE (AMIODARONE HYDROCHLORIDE) [Concomitant]

REACTIONS (5)
  - Osteoarthritis [None]
  - Back pain [None]
  - Pain in extremity [None]
  - Respiratory tract congestion [None]
  - Face oedema [None]

NARRATIVE: CASE EVENT DATE: 20141205
